FAERS Safety Report 19039328 (Version 1)
Quarter: 2021Q1

REPORT INFORMATION
  Report Type: Spontaneous
  Country: US (occurrence: US)
  Receive Date: 20210322
  Receipt Date: 20210322
  Transmission Date: 20210420
  Serious: Yes (Hospitalization)
  Sender: FDA-Public Use
  Company Number: US-AMGEN-USASP2021040923

PATIENT
  Age: 65 Year
  Sex: Male

DRUGS (1)
  1. PROLIA [Suspect]
     Active Substance: DENOSUMAB
     Indication: OSTEOARTHRITIS
     Dosage: UNK
     Route: 065
     Dates: start: 2019

REACTIONS (3)
  - Renal disorder [Unknown]
  - Off label use [Unknown]
  - COVID-19 [Recovering/Resolving]

NARRATIVE: CASE EVENT DATE: 2019
